FAERS Safety Report 4266193-4 (Version None)
Quarter: 2004Q1

REPORT INFORMATION
  Report Type: 
  Country: None (occurrence: None)
  Receive Date: 20040106
  Receipt Date: 20031222
  Transmission Date: 20041129
  Serious: No
  Sender: FDA-Public Use
  Company Number: 2003UW17138

PATIENT
  Sex: Female

DRUGS (2)
  1. CRESTOR [Suspect]
  2. DILANTIN [Concomitant]

REACTIONS (1)
  - GRAND MAL CONVULSION [None]
